FAERS Safety Report 15707849 (Version 1)
Quarter: 2018Q4

REPORT INFORMATION
  Report Type: Spontaneous
  Country: US (occurrence: US)
  Receive Date: 20181127
  Receipt Date: 20181127
  Transmission Date: 20190205
  Serious: Yes (Disabling)
  Sender: FDA-Public Use
  Company Number: None

PATIENT

DRUGS (3)
  1. PROBIOTIC ACIDAPHILUS [Concomitant]
  2. RAPID CLENSE [Concomitant]
  3. GADOLINIUM [Suspect]
     Active Substance: GADOLINIUM

REACTIONS (3)
  - Polymyalgia rheumatica [None]
  - Contrast media deposition [None]
  - Pain [None]

NARRATIVE: CASE EVENT DATE: 20180810
